FAERS Safety Report 25105159 (Version 1)
Quarter: 2025Q1

REPORT INFORMATION
  Report Type: Spontaneous
  Country: US (occurrence: None)
  Receive Date: 20250321
  Receipt Date: 20250321
  Transmission Date: 20250409
  Serious: Yes (Other)
  Sender: FDA-CTU
  Company Number: None

PATIENT
  Age: 37 Year
  Sex: Female
  Weight: 98.55 kg

DRUGS (3)
  1. TIRZEPATIDE [Suspect]
     Active Substance: TIRZEPATIDE
     Indication: Weight decreased
     Route: 058
     Dates: start: 20250225, end: 20250318
  2. WELLBUTRIN 150MG SR BID [Concomitant]
  3. VYVANSE 60MG QDAY [Concomitant]

REACTIONS (3)
  - Asthenopia [None]
  - Blepharospasm [None]
  - Vision blurred [None]

NARRATIVE: CASE EVENT DATE: 20250320
